FAERS Safety Report 13643240 (Version 2)
Quarter: 2017Q2

REPORT INFORMATION
  Report Type: Spontaneous
  Country: US (occurrence: US)
  Receive Date: 20170612
  Receipt Date: 20170619
  Transmission Date: 20170830
  Serious: Yes (Other)
  Sender: FDA-Public Use
  Company Number: US-PFIZER INC-2017248744

PATIENT

DRUGS (1)
  1. CELEBREX [Suspect]
     Active Substance: CELECOXIB
     Dosage: UNK

REACTIONS (2)
  - Pain [Unknown]
  - Renal disorder [Unknown]
